FAERS Safety Report 9353922 (Version 1)
Quarter: 2013Q2

REPORT INFORMATION
  Report Type: Spontaneous
  Country: BR (occurrence: BR)
  Receive Date: 20130618
  Receipt Date: 20130618
  Transmission Date: 20140414
  Serious: Yes (Hospitalization, Other)
  Sender: FDA-Public Use
  Company Number: BR-PFIZER INC-2013169865

PATIENT
  Age: 48 Year
  Sex: Female

DRUGS (1)
  1. CELEBRA [Suspect]
     Indication: PAIN IN EXTREMITY
     Dosage: UNK

REACTIONS (3)
  - Renal failure acute [Unknown]
  - Pneumonia [Unknown]
  - Granulomatosis with polyangiitis [Unknown]
